FAERS Safety Report 6772227-5 (Version None)
Quarter: 2010Q2

REPORT INFORMATION
  Report Type: 
  Country: None (occurrence: None)
  Receive Date: 20100616
  Receipt Date: 20100614
  Transmission Date: 20101027
  Serious: Yes (Hospitalization)
  Sender: FDA-Public Use
  Company Number: US-B.I. PHARMACEUTICALS,INC./RIDGEFIELD-2010-BP-06719BP

PATIENT
  Sex: Female

DRUGS (12)
  1. SPIRIVA [Suspect]
     Indication: CHRONIC OBSTRUCTIVE PULMONARY DISEASE
     Dosage: 18 MCG
     Route: 055
     Dates: start: 20020101
  2. LEVOTHYROXINE SODIUM [Concomitant]
     Indication: THYROID DISORDER
     Route: 048
  3. CLONAZEPAM [Concomitant]
     Indication: ANXIETY
     Dosage: 2 MG
     Route: 048
  4. LISINOPRIL [Concomitant]
     Dosage: 40 MG
     Route: 048
  5. HUMULIN N [Concomitant]
     Indication: DIABETES MELLITUS
     Route: 058
  6. SINGULAIR [Concomitant]
     Indication: CHRONIC OBSTRUCTIVE PULMONARY DISEASE
     Dosage: 10 MG
     Route: 048
  7. PRAVASTATIN [Concomitant]
     Dosage: 40 MG
     Route: 048
  8. ALBUTEROL [Concomitant]
  9. FLOVENT [Concomitant]
     Dosage: 2 PUF
     Route: 055
  10. FISH OIL [Concomitant]
     Route: 048
  11. MULTI-VITAMIN [Concomitant]
     Route: 048
  12. METAMUCIL-2 [Concomitant]
     Route: 048

REACTIONS (5)
  - ARTHRITIS [None]
  - CARDIAC FAILURE CONGESTIVE [None]
  - CARPAL TUNNEL SYNDROME [None]
  - CELLULITIS [None]
  - PNEUMONIA [None]
